FAERS Safety Report 5909898-9 (Version None)
Quarter: 2008Q4

REPORT INFORMATION
  Report Type: 
  Country: None (occurrence: None)
  Receive Date: 20081007
  Receipt Date: 20081002
  Transmission Date: 20090506
  Serious: Yes (Life-Threatening, Other)
  Sender: FDA-Public Use
  Company Number: PHHY2008PT23404

PATIENT
  Sex: Female

DRUGS (4)
  1. VOLTAREN [Suspect]
     Indication: ARTHRALGIA
     Dosage: 75 MG
     Route: 030
     Dates: start: 20080625
  2. VOLTAREN [Suspect]
     Dosage: UNK
     Dates: start: 20080630
  3. VOLTAREN [Suspect]
     Dosage: UNK
     Dates: start: 20080709
  4. THIOCOLCHICOSIDE [Suspect]
     Indication: ARTHRALGIA
     Dosage: UNK
     Dates: start: 20080625

REACTIONS (5)
  - ANAPHYLACTIC SHOCK [None]
  - DYSPNOEA [None]
  - HYPOTENSION [None]
  - PRURITUS [None]
  - PSYCHOMOTOR HYPERACTIVITY [None]
